FAERS Safety Report 9531248 (Version 1)
Quarter: 2013Q2

REPORT INFORMATION
  Report Type: Spontaneous
  Country: US (occurrence: None)
  Receive Date: 20130418
  Receipt Date: 20130418
  Transmission Date: 20140414
  Serious: Yes (Hospitalization)
  Sender: FDA-Public Use
  Company Number: 2013PROUSA02442

PATIENT
  Age: 70 Year
  Sex: Male
  Weight: 73.2 kg

DRUGS (3)
  1. PROVENGE (SIPLULEUCEL-T) SUSPENSION, 250ML [Suspect]
     Indication: PROSTATE CANCER METASTATIC
     Dosage: SINGLE
     Route: 042
     Dates: start: 20120426, end: 20120426
  2. ABIRATERONE ACETATE W/ PREDNISOLONE [Concomitant]
  3. LEUPROLIDE (LEUPROLIDE) [Concomitant]

REACTIONS (6)
  - Pain in extremity [None]
  - Asthenia [None]
  - Vomiting [None]
  - Pyrexia [None]
  - Arthralgia [None]
  - Anaemia [None]
